FAERS Safety Report 7831810-6 (Version None)
Quarter: 2011Q4

REPORT INFORMATION
  Report Type: 
  Country: None (occurrence: None)
  Receive Date: 20111021
  Receipt Date: 20111014
  Transmission Date: 20120403
  Serious: Yes (Other)
  Sender: FDA-Public Use
  Company Number: US-PFIZER INC-2011212622

PATIENT
  Sex: Female
  Weight: 103 kg

DRUGS (2)
  1. METOPROLOL [Concomitant]
     Indication: HYPERTENSION
     Dosage: 50 MG, DAILY
  2. DETROL LA [Suspect]
     Dosage: UNK

REACTIONS (5)
  - ABASIA [None]
  - ARTHRALGIA [None]
  - BLOOD PRESSURE INCREASED [None]
  - LIMB DISCOMFORT [None]
  - MUSCULOSKELETAL STIFFNESS [None]
